FAERS Safety Report 24176568 (Version 2)
Quarter: 2025Q1

REPORT INFORMATION
  Report Type: Spontaneous
  Country: US (occurrence: US)
  Receive Date: 20240806
  Receipt Date: 20250110
  Transmission Date: 20250409
  Serious: No
  Sender: SANOFI AVENTIS
  Company Number: US-SA-SAC20240730001551

PATIENT
  Age: 88 Year
  Sex: Female

DRUGS (1)
  1. DUPIXENT [Suspect]
     Active Substance: DUPILUMAB
     Indication: Dermatitis atopic
     Dosage: 300 MG, QOW
     Route: 058

REACTIONS (8)
  - Fatigue [Unknown]
  - Poor quality sleep [Unknown]
  - Delayed dark adaptation [Unknown]
  - Intraocular pressure increased [Not Recovered/Not Resolved]
  - Neck pain [Unknown]
  - Road traffic accident [Unknown]
  - Inappropriate schedule of product administration [Unknown]
  - Injection site pain [Unknown]
